FAERS Safety Report 10410667 (Version 1)
Quarter: 2014Q3

REPORT INFORMATION
  Report Type: Spontaneous
  Country: GB (occurrence: GB)
  Receive Date: 20140826
  Receipt Date: 20140826
  Transmission Date: 20150326
  Serious: Yes (Hospitalization)
  Sender: FDA-Public Use
  Company Number: GB-TAKEDA-2014TEU007191

PATIENT
  Age: 68 Year
  Sex: Female

DRUGS (3)
  1. ASPIRIN ACTIV [Concomitant]
     Indication: RAYNAUD^S PHENOMENON
     Dosage: 100 MG, QD
  2. LANSOPRAZOLE. [Suspect]
     Active Substance: LANSOPRAZOLE
     Indication: RAYNAUD^S PHENOMENON
     Dosage: 30 MG, QD
     Dates: start: 200911
  3. NIFEDIPINE. [Concomitant]
     Active Substance: NIFEDIPINE
     Indication: RAYNAUD^S PHENOMENON
     Dosage: 30 MG, QD

REACTIONS (1)
  - Colitis microscopic [Recovered/Resolved]
